FAERS Safety Report 7970919-3 (Version None)
Quarter: 2011Q4

REPORT INFORMATION
  Report Type: 
  Country: None (occurrence: None)
  Receive Date: 20111212
  Receipt Date: 20111208
  Transmission Date: 20120403
  Serious: Yes (Hospitalization)
  Sender: FDA-Public Use
  Company Number: FR-JNJFOC-20111202602

PATIENT
  Age: 67 Year
  Sex: Male

DRUGS (3)
  1. SUDAFED 12 HOUR [Suspect]
     Indication: RHINITIS
     Route: 048
     Dates: start: 20110826, end: 20110831
  2. RHINOFLUIMUCIL [Suspect]
     Indication: RHINITIS
     Route: 045
     Dates: start: 20110905, end: 20110920
  3. SUDAFED 12 HOUR [Suspect]
     Route: 048

REACTIONS (4)
  - PRURITUS [None]
  - ERYTHEMA [None]
  - FACE OEDEMA [None]
  - DERMATITIS EXFOLIATIVE [None]
